FAERS Safety Report 8194134-6 (Version None)
Quarter: 2012Q1

REPORT INFORMATION
  Report Type: 
  Country: None (occurrence: None)
  Receive Date: 20120308
  Receipt Date: 20120228
  Transmission Date: 20120608
  Serious: Yes (Hospitalization)
  Sender: FDA-Public Use
  Company Number: JP-ABBOTT-10P-087-0632360-00

PATIENT
  Sex: Female

DRUGS (5)
  1. PREDNISOLONE [Concomitant]
     Indication: RHEUMATOID ARTHRITIS
     Route: 048
     Dates: start: 20080618, end: 20100315
  2. ALENDRONATE SODIUM [Concomitant]
     Indication: OSTEOPOROSIS PROPHYLAXIS
     Route: 048
  3. INSULIN HUMAN [Concomitant]
     Indication: DIABETES MELLITUS
     Route: 058
  4. HUMIRA [Suspect]
     Indication: RHEUMATOID ARTHRITIS
     Route: 058
     Dates: start: 20100304, end: 20100304
  5. FAMOTIDINE [Concomitant]
     Indication: GASTRITIS PROPHYLAXIS
     Route: 048

REACTIONS (12)
  - C-REACTIVE PROTEIN ABNORMAL [None]
  - FALL [None]
  - PULMONARY CONGESTION [None]
  - RHEUMATOID VASCULITIS [None]
  - DYSSTASIA [None]
  - INTERSTITIAL LUNG DISEASE [None]
  - ASTHENIA [None]
  - CEREBRAL INFARCTION [None]
  - PLEURAL EFFUSION [None]
  - CHEST X-RAY ABNORMAL [None]
  - CYTOMEGALOVIRUS ENTEROCOLITIS [None]
  - MALAISE [None]
